FAERS Safety Report 8470198-7 (Version None)
Quarter: 2012Q2

REPORT INFORMATION
  Report Type: 
  Country: None (occurrence: None)
  Receive Date: 20120621
  Receipt Date: 20120621
  Transmission Date: 20120825
  Serious: Yes (Other)
  Sender: FDA-Public Use
  Company Number: None

PATIENT
  Age: 75 Year
  Sex: Female

DRUGS (1)
  1. LIVALO [Suspect]
     Indication: BLOOD CHOLESTEROL INCREASED
     Dosage: 2MG ONCE DAILY PO
     Route: 048
     Dates: start: 20120519, end: 20120610

REACTIONS (1)
  - MYALGIA [None]
